FAERS Safety Report 17986899 (Version 1)
Quarter: 2020Q3

REPORT INFORMATION
  Report Type: Report from Study
  Country: DE (occurrence: DE)
  Receive Date: 20200706
  Receipt Date: 20200706
  Transmission Date: 20201103
  Serious: Yes (Death, Life-Threatening, Hospitalization, Congenital Anomaly, Other)
  Sender: FDA-Public Use
  Company Number: DE-BAXTER-2020BAX013782

PATIENT
  Age: 67 Year
  Sex: Female
  Weight: 65 kg

DRUGS (51)
  1. DOXIL [Suspect]
     Active Substance: DOXORUBICIN HYDROCHLORIDE
     Indication: DIFFUSE LARGE B-CELL LYMPHOMA
     Route: 041
     Dates: start: 20180730, end: 20180730
  2. ENDOXAN 1G [Suspect]
     Active Substance: CYCLOPHOSPHAMIDE
     Route: 041
     Dates: start: 20180618, end: 20180618
  3. ENDOXAN 1G [Suspect]
     Active Substance: CYCLOPHOSPHAMIDE
     Route: 041
     Dates: start: 20180528, end: 20180528
  4. RITUXIMAB. [Suspect]
     Active Substance: RITUXIMAB
     Route: 041
     Dates: start: 20180528, end: 20180528
  5. VINCRISTINE [Suspect]
     Active Substance: VINCRISTINE
     Dosage: INFUSION TIME 13:15
     Route: 041
     Dates: start: 20180528, end: 20180528
  6. VINCRISTINE [Suspect]
     Active Substance: VINCRISTINE
     Route: 041
     Dates: start: 20180416, end: 20180416
  7. PARACETAMOL [Concomitant]
     Active Substance: ACETAMINOPHEN
     Indication: PRODUCT USED FOR UNKNOWN INDICATION
     Route: 048
     Dates: start: 20180416, end: 20180730
  8. MESNA. [Concomitant]
     Active Substance: MESNA
     Indication: PRODUCT USED FOR UNKNOWN INDICATION
     Route: 042
     Dates: start: 20180417, end: 20180730
  9. HOLOXAN [Suspect]
     Active Substance: IFOSFAMIDE
     Indication: PRODUCT USED FOR UNKNOWN INDICATION
     Route: 065
     Dates: start: 20180817
  10. VINCRISTINE [Suspect]
     Active Substance: VINCRISTINE
     Indication: DIFFUSE LARGE B-CELL LYMPHOMA
     Dosage: INFUSION TIME 14:15
     Route: 041
     Dates: start: 20180730, end: 20180730
  11. NOVALGIN [Concomitant]
     Indication: PROPHYLAXIS
     Dosage: DOSAGE: 500 MG/ML, 3X40 DRIPS/DAY
     Route: 048
     Dates: start: 20180407, end: 20181110
  12. GRANISETRON [Concomitant]
     Active Substance: GRANISETRON
     Indication: PRODUCT USED FOR UNKNOWN INDICATION
     Route: 042
     Dates: start: 20180417, end: 20180528
  13. DOXIL [Suspect]
     Active Substance: DOXORUBICIN HYDROCHLORIDE
     Route: 041
     Dates: start: 20180709, end: 20180709
  14. DOXIL [Suspect]
     Active Substance: DOXORUBICIN HYDROCHLORIDE
     Route: 041
     Dates: start: 20180528, end: 20180528
  15. ENDOXAN 1G [Suspect]
     Active Substance: CYCLOPHOSPHAMIDE
     Indication: DIFFUSE LARGE B-CELL LYMPHOMA
     Route: 041
     Dates: start: 20180730, end: 20180730
  16. ENDOXAN 1G [Suspect]
     Active Substance: CYCLOPHOSPHAMIDE
     Dosage: INFUSION RATE 500 ML/MIN FROM 13:10 TO 13:40
     Route: 041
     Dates: start: 20180507, end: 20180507
  17. RITUXIMAB. [Suspect]
     Active Substance: RITUXIMAB
     Dosage: INFUSION RATE 250 ML/MIN FROM 10:00 TO 12:40 (
     Route: 041
     Dates: start: 20180507, end: 20180507
  18. VINCRISTINE [Suspect]
     Active Substance: VINCRISTINE
     Route: 041
     Dates: start: 20180709, end: 20180709
  19. PREDNISONE. [Suspect]
     Active Substance: PREDNISONE
     Indication: DIFFUSE LARGE B-CELL LYMPHOMA
     Route: 048
     Dates: start: 20180730, end: 20180803
  20. PREDNISONE. [Suspect]
     Active Substance: PREDNISONE
     Route: 048
     Dates: start: 20180618, end: 20180622
  21. PREDNISONE. [Suspect]
     Active Substance: PREDNISONE
     Route: 048
     Dates: start: 20180528, end: 20180601
  22. PREDNISONE. [Suspect]
     Active Substance: PREDNISONE
     Route: 048
     Dates: start: 20180507, end: 20180511
  23. CARBOPLATIN. [Suspect]
     Active Substance: CARBOPLATIN
     Indication: PRODUCT USED FOR UNKNOWN INDICATION
     Route: 065
     Dates: start: 20180817
  24. PANTOZOL [Concomitant]
     Active Substance: PANTOPRAZOLE SODIUM
     Indication: PROPHYLAXIS
     Route: 048
     Dates: start: 20180409, end: 20180421
  25. ALLOPURINOL. [Concomitant]
     Active Substance: ALLOPURINOL
     Indication: PRODUCT USED FOR UNKNOWN INDICATION
     Route: 048
     Dates: start: 20180416, end: 20180730
  26. DOXIL [Suspect]
     Active Substance: DOXORUBICIN HYDROCHLORIDE
     Route: 041
     Dates: start: 20180507, end: 20180507
  27. RITUXIMAB. [Suspect]
     Active Substance: RITUXIMAB
     Indication: DIFFUSE LARGE B-CELL LYMPHOMA
     Dosage: INFUSION TIME FROM 10:30 TO 11:30
     Route: 041
     Dates: start: 20180730
  28. ETOPOSIDE. [Suspect]
     Active Substance: ETOPOSIDE
     Indication: PRODUCT USED FOR UNKNOWN INDICATION
     Route: 065
     Dates: start: 20180817
  29. PREDNISONE. [Suspect]
     Active Substance: PREDNISONE
     Route: 048
     Dates: start: 20180709, end: 20180713
  30. RAMIPRIL. [Concomitant]
     Active Substance: RAMIPRIL
     Indication: HYPERTONIA
     Route: 048
     Dates: end: 20181110
  31. STEROFUNDIN ISO [Concomitant]
     Indication: PRODUCT USED FOR UNKNOWN INDICATION
     Route: 042
     Dates: start: 20180417, end: 20180730
  32. DOXIL [Suspect]
     Active Substance: DOXORUBICIN HYDROCHLORIDE
     Route: 041
     Dates: start: 20180618, end: 20180618
  33. ENDOXAN 1G [Suspect]
     Active Substance: CYCLOPHOSPHAMIDE
     Route: 041
     Dates: start: 20180417, end: 20180417
  34. RITUXIMAB. [Suspect]
     Active Substance: RITUXIMAB
     Route: 041
     Dates: start: 20180817, end: 20180817
  35. VINCRISTINE [Suspect]
     Active Substance: VINCRISTINE
     Dosage: INFUSION TIME 12:50
     Route: 041
     Dates: start: 20180618, end: 20180618
  36. PREDNISONE. [Suspect]
     Active Substance: PREDNISONE
     Route: 048
     Dates: start: 20180416, end: 20180421
  37. PREDNISONE. [Suspect]
     Active Substance: PREDNISONE
     Route: 048
     Dates: start: 20180411, end: 20180414
  38. HCT [Concomitant]
     Active Substance: HYDROCHLOROTHIAZIDE
     Indication: GENERAL PHYSICAL HEALTH DETERIORATION
     Route: 048
     Dates: end: 20181110
  39. FENISTIL [Concomitant]
     Active Substance: DIMETHINDENE
     Indication: PRODUCT USED FOR UNKNOWN INDICATION
     Route: 042
     Dates: start: 20180416, end: 20180730
  40. GLUCOSE [Concomitant]
     Active Substance: DEXTROSE
     Indication: PRODUCT USED FOR UNKNOWN INDICATION
     Route: 042
     Dates: start: 20180417, end: 20180731
  41. ENDOXAN 1G [Suspect]
     Active Substance: CYCLOPHOSPHAMIDE
     Route: 041
     Dates: start: 20180709, end: 20180709
  42. COTRIM FORTE [Concomitant]
     Active Substance: SULFAMETHOXAZOLE\TRIMETHOPRIM
     Indication: PROPHYLAXIS
     Route: 048
     Dates: start: 20180427, end: 20181110
  43. PREDNISOLONE. [Concomitant]
     Active Substance: PREDNISOLONE
     Indication: GENERAL PHYSICAL HEALTH DETERIORATION
     Route: 042
     Dates: start: 20180411, end: 20180414
  44. MORPHINE SULFATE. [Concomitant]
     Active Substance: MORPHINE SULFATE
     Indication: PROPHYLAXIS
     Route: 048
     Dates: start: 20180816, end: 20180816
  45. VINCRISTINE SULFATE. [Concomitant]
     Active Substance: VINCRISTINE SULFATE
     Indication: GENERAL PHYSICAL HEALTH DETERIORATION
     Route: 065
     Dates: start: 20180411, end: 20180411
  46. DOXIL [Suspect]
     Active Substance: DOXORUBICIN HYDROCHLORIDE
     Route: 041
     Dates: start: 20180417, end: 20180417
  47. RITUXIMAB. [Suspect]
     Active Substance: RITUXIMAB
     Route: 041
     Dates: start: 20180709, end: 20180709
  48. RITUXIMAB. [Suspect]
     Active Substance: RITUXIMAB
     Route: 041
     Dates: start: 20180618, end: 20180618
  49. RITUXIMAB. [Suspect]
     Active Substance: RITUXIMAB
     Route: 041
     Dates: start: 20180416, end: 20180416
  50. VINCRISTINE [Suspect]
     Active Substance: VINCRISTINE
     Dosage: (INFUSION RATE 20 ML/MIN FROM 12:50 TO 13:10)
     Route: 041
     Dates: start: 20180507, end: 20180507
  51. AMOXICILLIN+ CLAVULANIC ACID [Concomitant]
     Active Substance: AMOXICILLIN\CLAVULANIC ACID
     Indication: PROPHYLAXIS
     Dosage: 875/125 MG
     Route: 042
     Dates: start: 20180327, end: 20180404

REACTIONS (28)
  - Gait inability [Unknown]
  - Disturbance in attention [Unknown]
  - Diffuse large B-cell lymphoma [Not Recovered/Not Resolved]
  - Insomnia [Unknown]
  - Hypokalaemia [Recovered/Resolved]
  - Non-Hodgkin^s lymphoma [Recovered/Resolved]
  - Pain [Unknown]
  - Leukopenia [Recovered/Resolved]
  - Anxiety [Unknown]
  - Dyspnoea [Unknown]
  - Nausea [Unknown]
  - Infection [Fatal]
  - Depression [Unknown]
  - Decreased appetite [Unknown]
  - Tension [Unknown]
  - Mobility decreased [Unknown]
  - Malignant neoplasm progression [Not Recovered/Not Resolved]
  - Pyrexia [Fatal]
  - Irritability [Unknown]
  - Jugular vein thrombosis [Not Recovered/Not Resolved]
  - Abdominal pain [Recovered/Resolved]
  - Diarrhoea [Unknown]
  - Memory impairment [Unknown]
  - Status epilepticus [Recovered/Resolved]
  - General physical health deterioration [Unknown]
  - Constipation [Unknown]
  - Fatigue [Unknown]
  - Asthenia [Unknown]

NARRATIVE: CASE EVENT DATE: 20180601
